FAERS Safety Report 24237552 (Version 1)
Quarter: 2024Q3

REPORT INFORMATION
  Report Type: Spontaneous
  Country: JP (occurrence: JP)
  Receive Date: 20240822
  Receipt Date: 20240822
  Transmission Date: 20241017
  Serious: Yes (Other)
  Sender: NOVARTIS
  Company Number: JP-002147023-NVSJ2024JP009856

PATIENT
  Age: 32 Year
  Sex: Male

DRUGS (1)
  1. ILARIS [Suspect]
     Active Substance: CANAKINUMAB
     Indication: Chronic infantile neurological cutaneous and articular syndrome
     Dosage: 450 MG, 4W
     Route: 058

REACTIONS (7)
  - Intestinal ulcer [Unknown]
  - Melaena [Unknown]
  - Ulcer haemorrhage [Unknown]
  - Pain in extremity [Unknown]
  - Pyrexia [Unknown]
  - Gait disturbance [Unknown]
  - Tinnitus [Unknown]
